FAERS Safety Report 8272446-5 (Version None)
Quarter: 2012Q2

REPORT INFORMATION
  Report Type: 
  Country: None (occurrence: None)
  Receive Date: 20120410
  Receipt Date: 20120404
  Transmission Date: 20120825
  Serious: Yes (Hospitalization)
  Sender: FDA-Public Use
  Company Number: US-BAYER-2012-034320

PATIENT
  Age: 33 Year
  Sex: Female

DRUGS (2)
  1. REVATIO [Concomitant]
  2. VENTAVIS [Suspect]
     Indication: PULMONARY ARTERIAL HYPERTENSION
     Dosage: 20 UNK, UNK
     Route: 055
     Dates: start: 20101011

REACTIONS (1)
  - INTESTINAL OBSTRUCTION [None]
